FAERS Safety Report 13736190 (Version 4)
Quarter: 2018Q2

REPORT INFORMATION
  Report Type: Spontaneous
  Country: JP (occurrence: JP)
  Receive Date: 20170710
  Receipt Date: 20180625
  Transmission Date: 20180711
  Serious: Yes (Life-Threatening, Hospitalization, Other)
  Sender: FDA-Public Use
  Company Number: JP-SHIRE-JP201714712

PATIENT

DRUGS (20)
  1. AMLODIPINE [Concomitant]
     Active Substance: AMLODIPINE BESYLATE
     Indication: PRODUCT USED FOR UNKNOWN INDICATION
     Dosage: 5 MG, UNK
     Dates: start: 20160704
  2. EPOETIN BETA [Concomitant]
     Active Substance: ERYTHROPOIETIN
     Indication: PRODUCT USED FOR UNKNOWN INDICATION
     Dosage: UNK
     Dates: start: 201403
  3. FOSRENOL [Suspect]
     Active Substance: LANTHANUM CARBONATE
     Indication: HYPERPHOSPHATAEMIA
     Dosage: 750 MG, 1X/DAY:QD, GRANULE (250 MG STRENGTH)
     Route: 048
     Dates: start: 20150826, end: 20150924
  4. FOSRENOL [Suspect]
     Active Substance: LANTHANUM CARBONATE
     Dosage: 1500 MG, 1X/DAY:QD GRANULE (500 MG STRENGTH)
     Route: 048
     Dates: start: 20150924, end: 20170208
  5. CALCIUM CARBONATE. [Concomitant]
     Active Substance: CALCIUM CARBONATE
     Indication: PRODUCT USED FOR UNKNOWN INDICATION
     Dosage: UNK
     Dates: start: 2013
  6. HYDROCORTISONE. [Concomitant]
     Active Substance: HYDROCORTISONE
     Indication: PRODUCT USED FOR UNKNOWN INDICATION
  7. RIMATIL [Concomitant]
     Active Substance: BUCILLAMINE
     Indication: PRODUCT USED FOR UNKNOWN INDICATION
  8. FOSRENOL [Suspect]
     Active Substance: LANTHANUM CARBONATE
     Indication: HYPERPHOSPHATAEMIA
     Dosage: UNK, 1X/DAY:QD
     Route: 048
     Dates: start: 20150924, end: 20170208
  9. DOXAZOSIN [Concomitant]
     Active Substance: DOXAZOSIN\DOXAZOSIN MESYLATE
     Indication: PRODUCT USED FOR UNKNOWN INDICATION
     Dosage: 4 MG, UNK
     Dates: start: 2013
  10. FOSRENOL [Suspect]
     Active Substance: LANTHANUM CARBONATE
     Dosage: 1500 MG, 1X/DAY:QD
     Route: 065
     Dates: start: 201702, end: 201704
  11. NALFURAFINE HYDROCHLORIDE [Concomitant]
     Active Substance: NALFURAFINE HYDROCHLORIDE
     Indication: PRURITUS
  12. FOSRENOL [Suspect]
     Active Substance: LANTHANUM CARBONATE
     Dosage: 1500 MG, 1X/DAY:QD, TABLET (250 MG STRENGTH)
     Route: 048
     Dates: start: 20170605, end: 20170621
  13. FOSRENOL [Suspect]
     Active Substance: LANTHANUM CARBONATE
     Dosage: 1500 MG, 1X/DAY:QD TABLET (STRENGTH 500 MG)
     Route: 048
     Dates: start: 20170208, end: 20170427
  14. CANDESARTAN. [Concomitant]
     Active Substance: CANDESARTAN
     Indication: PRODUCT USED FOR UNKNOWN INDICATION
     Dosage: 4 MG, UNK
     Dates: start: 20170602
  15. ZOLPIDEM TARTRATE. [Concomitant]
     Active Substance: ZOLPIDEM TARTRATE
     Indication: PRODUCT USED FOR UNKNOWN INDICATION
     Dosage: UNK
     Dates: start: 2013
  16. ETIZOLAM [Concomitant]
     Active Substance: ETIZOLAM
     Indication: INSOMNIA
  17. FOSRENOL [Suspect]
     Active Substance: LANTHANUM CARBONATE
     Dosage: 750 MG, 1X/DAY:QD
     Route: 048
     Dates: start: 20170605, end: 20170619
  18. FOSRENOL [Suspect]
     Active Substance: LANTHANUM CARBONATE
     Indication: HYPERPHOSPHATAEMIA
     Dosage: UNK
     Route: 065
     Dates: start: 201509, end: 201702
  19. FERRIC CITRATE [Concomitant]
     Active Substance: TETRAFERRIC TRICITRATE DECAHYDRATE
     Indication: PRODUCT USED FOR UNKNOWN INDICATION
  20. MEVATORTE [Concomitant]
     Active Substance: PRAVASTATIN SODIUM
     Indication: HYPERLIPIDAEMIA

REACTIONS (4)
  - Pancytopenia [Unknown]
  - Pancytopenia [Recovered/Resolved]
  - Pneumonia [Recovering/Resolving]
  - Cardiac failure congestive [Recovering/Resolving]

NARRATIVE: CASE EVENT DATE: 20170123
